FAERS Safety Report 9611617 (Version 2)
Quarter: 2013Q4

REPORT INFORMATION
  Report Type: Report from Study
  Country: JP (occurrence: JP)
  Receive Date: 20131010
  Receipt Date: 20131125
  Transmission Date: 20140711
  Serious: Yes (Life-Threatening)
  Sender: FDA-Public Use
  Company Number: JP-ROCHE-1284423

PATIENT
  Age: 81 Year
  Sex: Female
  Weight: 31 kg

DRUGS (12)
  1. METHOXY POLYETHYLENE GLYCOL-EPOETIN BETA [Suspect]
     Indication: NEPHROGENIC ANAEMIA
     Route: 042
     Dates: start: 20120604, end: 20120604
  2. METHOXY POLYETHYLENE GLYCOL-EPOETIN BETA [Suspect]
     Indication: NEPHROGENIC ANAEMIA
     Route: 042
     Dates: start: 20120702, end: 20120718
  3. METHOXY POLYETHYLENE GLYCOL-EPOETIN BETA [Suspect]
     Indication: NEPHROGENIC ANAEMIA
     Route: 042
     Dates: start: 20120806, end: 20121001
  4. METHOXY POLYETHYLENE GLYCOL-EPOETIN BETA [Suspect]
     Indication: NEPHROGENIC ANAEMIA
     Route: 042
     Dates: start: 20121105, end: 20121105
  5. LANIRAPID [Concomitant]
     Route: 048
     Dates: end: 20121010
  6. WARFARIN [Concomitant]
     Route: 048
     Dates: end: 20121010
  7. OMEPRAZOLE [Concomitant]
     Dosage: DRUG REPORTED AS OVULANZE
     Route: 048
     Dates: end: 20121010
  8. SUNRYTHM [Concomitant]
     Route: 048
     Dates: end: 20121010
  9. PLATIBIT [Concomitant]
     Route: 048
     Dates: end: 20121010
  10. ALEVIATIN [Concomitant]
     Route: 048
     Dates: end: 20121010
  11. RIVOTRIL [Concomitant]
     Dosage: ONLY ON THE DIALYSIS DAY
     Route: 048
     Dates: end: 20121010
  12. CALCIUM CARBONATE [Concomitant]
     Route: 048
     Dates: end: 20121010

REACTIONS (1)
  - Cerebral infarction [Recovered/Resolved with Sequelae]
